FAERS Safety Report 4920625-4 (Version None)
Quarter: 2006Q1

REPORT INFORMATION
  Report Type: 
  Country: None (occurrence: None)
  Receive Date: 20060223
  Receipt Date: 20060213
  Transmission Date: 20060701
  Serious: Yes (Hospitalization)
  Sender: FDA-Public Use
  Company Number: US-ROCHE-436535

PATIENT
  Age: 49 Year
  Sex: Male

DRUGS (2)
  1. FUZEON [Suspect]
     Indication: DRUG USE FOR UNKNOWN INDICATION
     Dosage: ROUTE REPORTED AS INJ.
     Route: 050
     Dates: start: 20060129
  2. INSULIN [Concomitant]
     Dosage: ONCE IN THE MORNING AND ONCE IN THE EVENING. SINCE LATE 2005.
     Dates: start: 20050615

REACTIONS (4)
  - CHEST DISCOMFORT [None]
  - INJECTION SITE PRURITUS [None]
  - INJECTION SITE REACTION [None]
  - PULMONARY OEDEMA [None]
